FAERS Safety Report 10256894 (Version 4)
Quarter: 2014Q4

REPORT INFORMATION
  Report Type: Spontaneous
  Country: FI (occurrence: FI)
  Receive Date: 20140625
  Receipt Date: 20141103
  Transmission Date: 20150528
  Serious: Yes (Death, Other)
  Sender: FDA-Public Use
  Company Number: FI-ROCHE-1422591

PATIENT
  Age: 72 Year
  Sex: Female

DRUGS (19)
  1. LYRICA [Concomitant]
     Active Substance: PREGABALIN
     Route: 065
  2. VALTREX [Concomitant]
     Active Substance: VALACYCLOVIR HYDROCHLORIDE
     Route: 065
     Dates: start: 2005, end: 2006
  3. BURANA [Concomitant]
     Active Substance: IBUPROFEN
     Route: 065
  4. PREDNISOLON [Concomitant]
     Active Substance: PREDNISOLONE
     Dosage: ACCORDING TO SEPARATE INSTRUCTIONS
     Route: 065
  5. SOMAC [Concomitant]
     Active Substance: PANTOPRAZOLE SODIUM
     Route: 065
  6. NEUROBION FORTE [Concomitant]
     Active Substance: CYANOCOBALAMIN\PYRIDOXINE HYDROCHLORIDE\THIAMINE DISULFIDE
     Route: 065
  7. OXIKLORIN [Concomitant]
     Active Substance: HYDROXYCHLOROQUINE SULFATE
     Route: 065
     Dates: start: 200806, end: 201404
  8. TREXAN (FINLAND) [Concomitant]
     Route: 065
     Dates: end: 201406
  9. MABTHERA [Suspect]
     Active Substance: RITUXIMAB
     Route: 042
     Dates: start: 20140317
  10. CALCICHEW D3 FORTE [Concomitant]
     Active Substance: CALCIUM\CHOLECALCIFEROL
     Route: 065
  11. IMOVANE [Concomitant]
     Active Substance: ZOPICLONE
     Route: 065
  12. TREXAN (FINLAND) [Concomitant]
     Route: 048
     Dates: start: 200507
  13. MYOCRISIN [Concomitant]
     Route: 065
     Dates: start: 200808
  14. OXIKLORIN [Concomitant]
     Active Substance: HYDROXYCHLOROQUINE SULFATE
     Route: 065
     Dates: start: 200507, end: 2005
  15. ALENDRONAT [Concomitant]
     Active Substance: ALENDRONATE SODIUM
     Route: 065
  16. PANADOL FORTE [Concomitant]
     Dosage: WHEN NEEDED
     Route: 065
  17. MABTHERA [Suspect]
     Active Substance: RITUXIMAB
     Indication: RHEUMATOID ARTHRITIS
     Route: 042
     Dates: start: 20140303
  18. PREDNISOLON [Concomitant]
     Active Substance: PREDNISOLONE
     Route: 065
  19. VALTREX [Concomitant]
     Active Substance: VALACYCLOVIR HYDROCHLORIDE
     Route: 065

REACTIONS (17)
  - Pulmonary thrombosis [Fatal]
  - C-reactive protein increased [Unknown]
  - Arthralgia [Unknown]
  - JC virus test positive [Unknown]
  - Monoparesis [Fatal]
  - Lung disorder [Fatal]
  - Pneumonia [Fatal]
  - Intracardiac thrombus [Fatal]
  - Polyneuropathy [Fatal]
  - Hypoaesthesia [Unknown]
  - Pyrexia [Unknown]
  - Hyperhidrosis [Unknown]
  - Interstitial lung disease [Fatal]
  - Pain in extremity [Not Recovered/Not Resolved]
  - General physical health deterioration [Unknown]
  - Vasculitis [Unknown]
  - Cytomegalovirus infection [Unknown]

NARRATIVE: CASE EVENT DATE: 20140322
